FAERS Safety Report 4944483-7 (Version None)
Quarter: 2006Q1

REPORT INFORMATION
  Report Type: 
  Country: None (occurrence: None)
  Receive Date: 20060315
  Receipt Date: 20060303
  Transmission Date: 20060701
  Serious: Yes (Other)
  Sender: FDA-Public Use
  Company Number: DE-MERCK-0603DEU00051

PATIENT
  Age: 21 Month
  Sex: Male

DRUGS (6)
  1. CANCIDAS [Suspect]
     Indication: PSEUDALLESCHERIA INFECTION
     Route: 042
  2. CANCIDAS [Suspect]
     Route: 042
  3. CANCIDAS [Suspect]
     Route: 051
  4. CANCIDAS [Suspect]
     Route: 051
  5. VORICONAZOLE [Concomitant]
     Indication: FUNGAL INFECTION
     Route: 042
  6. TERBINAFINE [Concomitant]
     Indication: FUNGAL INFECTION
     Route: 042

REACTIONS (2)
  - CNS VENTRICULITIS [None]
  - INTENTIONAL DRUG MISUSE [None]
